FAERS Safety Report 17830725 (Version 1)
Quarter: 2020Q2

REPORT INFORMATION
  Report Type: Spontaneous
  Country: US (occurrence: US)
  Receive Date: 20200527
  Receipt Date: 20200527
  Transmission Date: 20200714
  Serious: Yes (Hospitalization, Other)
  Sender: FDA-Public Use
  Company Number: US-BRISTOL-MYERS SQUIBB COMPANY-BMS-2020-038972

PATIENT
  Sex: Female
  Weight: 90.7 kg

DRUGS (2)
  1. COUMADIN [Suspect]
     Active Substance: WARFARIN SODIUM
     Indication: MITRAL VALVE REPLACEMENT
     Dosage: 10 MILLIGRAM
     Route: 065
     Dates: start: 20000216
  2. COUMADIN [Suspect]
     Active Substance: WARFARIN SODIUM
     Indication: PRODUCT USED FOR UNKNOWN INDICATION
     Dosage: 8 MILLIGRAM
     Route: 065
     Dates: start: 20000216

REACTIONS (4)
  - Arthropathy [Unknown]
  - Glaucoma [Unknown]
  - Weight decreased [Unknown]
  - Tooth disorder [Unknown]
